FAERS Safety Report 8578660-3 (Version None)
Quarter: 2012Q3

REPORT INFORMATION
  Report Type: 
  Country: None (occurrence: None)
  Receive Date: 20120808
  Receipt Date: 20120726
  Transmission Date: 20120928
  Serious: Yes (Hospitalization)
  Sender: FDA-Public Use
  Company Number: AR-SANOFI-AVENTIS-2012SA049500

PATIENT
  Age: 66 Year
  Sex: Male
  Weight: 77 kg

DRUGS (7)
  1. INSULIN LISPRO [Suspect]
     Indication: TYPE 2 DIABETES MELLITUS
     Dosage: DISPOSABLE PENDOSE + FREQ: 10 IU IN BREAKFAST, 9 IU AT LUNCH AND 9 IU AT DINNER
     Route: 058
     Dates: start: 20111202, end: 20120521
  2. ASPIRIN [Concomitant]
     Indication: CARDIOVASCULAR EVENT PROPHYLAXIS
     Dates: start: 20100201
  3. ATORVASTATIN [Concomitant]
     Dates: start: 20110512
  4. METFORMIN HYDROCHLORIDE [Concomitant]
     Indication: TYPE 2 DIABETES MELLITUS
     Dates: start: 20110512
  5. LANTUS [Suspect]
     Indication: TYPE 2 DIABETES MELLITUS
     Route: 058
     Dates: start: 20111011, end: 20120521
  6. CILOSTAZOL [Concomitant]
     Indication: INTERMITTENT CLAUDICATION
     Dates: start: 20110101
  7. LOSARTAN POTASSIUM [Concomitant]
     Indication: HYPERTENSION
     Dates: start: 20110801, end: 20120521

REACTIONS (2)
  - ATRIAL FIBRILLATION [None]
  - CARDIAC FAILURE [None]
